FAERS Safety Report 13503375 (Version 2)
Quarter: 2017Q2

REPORT INFORMATION
  Report Type: Spontaneous
  Country: HR (occurrence: HR)
  Receive Date: 20170502
  Receipt Date: 20170522
  Transmission Date: 20170830
  Serious: Yes (Death, Life-Threatening, Hospitalization, Other)
  Sender: FDA-Public Use
  Company Number: HR-GLENMARK PHARMACEUTICALS-2017GMK027307

PATIENT
  Age: 70 Year
  Sex: Female

DRUGS (7)
  1. AMLODIPINE [Concomitant]
     Active Substance: AMLODIPINE BESYLATE
     Indication: PRODUCT USED FOR UNKNOWN INDICATION
     Dosage: 10 MG, UNK
     Route: 065
  2. INSULIN ASPART PROTAMINE [Concomitant]
     Indication: TYPE 2 DIABETES MELLITUS
     Dosage: 26 IU, UNK
     Route: 065
  3. FUROSEMIDE. [Concomitant]
     Active Substance: FUROSEMIDE
     Indication: PRODUCT USED FOR UNKNOWN INDICATION
     Dosage: 0.5 G, UNK
     Route: 065
  4. METFORMIN HYDROCHLORIDE. [Suspect]
     Active Substance: METFORMIN HYDROCHLORIDE
     Indication: TYPE 2 DIABETES MELLITUS
     Dosage: 1 G, UNK
     Route: 065
  5. INSULIN ASPART PROTAMINE [Concomitant]
     Dosage: 16 IU, UNK
     Route: 065
  6. INSULIN ASPART PROTAMINE [Concomitant]
     Dosage: 20 IU, UNK
     Route: 065
  7. BISOPROLOL [Concomitant]
     Active Substance: BISOPROLOL
     Indication: PRODUCT USED FOR UNKNOWN INDICATION
     Dosage: 2.5 MG, UNK
     Route: 065

REACTIONS (4)
  - Lactic acidosis [Fatal]
  - Hypoglycaemia [Unknown]
  - Bradycardia [Unknown]
  - Hypothermia [Unknown]
